FAERS Safety Report 20018346 (Version 1)
Quarter: 2021Q4

REPORT INFORMATION
  Report Type: Spontaneous
  Country: JP (occurrence: JP)
  Receive Date: 20211101
  Receipt Date: 20211101
  Transmission Date: 20220303
  Serious: Yes (Other)
  Sender: FDA-Public Use
  Company Number: JP-ASTELLAS-2021JP019636

PATIENT
  Age: 9 Year
  Sex: Female
  Weight: 53 kg

DRUGS (8)
  1. MICAFUNGIN SODIUM [Suspect]
     Active Substance: MICAFUNGIN SODIUM
     Indication: Febrile neutropenia
     Dosage: UNK UNK, UNKNOWN FREQ.
  2. MICAFUNGIN SODIUM [Suspect]
     Active Substance: MICAFUNGIN SODIUM
     Indication: Streptococcal bacteraemia
  3. CEFEPIME HYDROCHLORIDE [Concomitant]
     Active Substance: CEFEPIME HYDROCHLORIDE
     Indication: Febrile neutropenia
     Dosage: UNK UNK, UNKNOWN FREQ.
     Route: 065
  4. CEFEPIME HYDROCHLORIDE [Concomitant]
     Active Substance: CEFEPIME HYDROCHLORIDE
     Indication: Streptococcal bacteraemia
     Dosage: UNK UNK, UNKNOWN FREQ.
     Route: 065
  5. MEROPENEM [Concomitant]
     Active Substance: MEROPENEM
     Indication: Febrile neutropenia
     Dosage: UNK UNK, UNKNOWN FREQ.
     Route: 065
  6. MEROPENEM [Concomitant]
     Active Substance: MEROPENEM
     Indication: Streptococcal bacteraemia
  7. VANCOMYCIN [Concomitant]
     Active Substance: VANCOMYCIN
     Indication: Febrile neutropenia
     Dosage: UNK UNK, UNKNOWN FREQ.
     Route: 065
  8. VANCOMYCIN [Concomitant]
     Active Substance: VANCOMYCIN
     Indication: Streptococcal bacteraemia

REACTIONS (3)
  - Pancytopenia [Unknown]
  - Meningitis [Recovering/Resolving]
  - Off label use [Unknown]
